FAERS Safety Report 25664437 (Version 1)
Quarter: 2025Q3

REPORT INFORMATION
  Report Type: Spontaneous
  Country: US (occurrence: US)
  Receive Date: 20250811
  Receipt Date: 20250811
  Transmission Date: 20251021
  Serious: Yes (Death)
  Sender: BAYER HEALTHCARE PHARMACEUTICALS INC.
  Company Number: US-BAYER-2025A105307

PATIENT
  Sex: Male

DRUGS (1)
  1. KERENDIA [Suspect]
     Active Substance: FINERENONE
     Indication: Heart failure with preserved ejection fraction
     Dosage: 10 MG, QD
     Dates: start: 20250627

REACTIONS (1)
  - Death [Fatal]

NARRATIVE: CASE EVENT DATE: 20250723
